FAERS Safety Report 7154616-2 (Version None)
Quarter: 2010Q4

REPORT INFORMATION
  Report Type: 
  Country: None (occurrence: None)
  Receive Date: 20101214
  Receipt Date: 20091127
  Transmission Date: 20110411
  Serious: No
  Sender: FDA-Public Use
  Company Number: US-AMGEN-KDL372495

PATIENT

DRUGS (2)
  1. ENBREL [Suspect]
     Indication: RHEUMATOID ARTHRITIS
     Dosage: 50 MG, QWK
     Route: 058
     Dates: start: 20090701
  2. METHOTREXATE [Concomitant]
     Indication: RHEUMATOID ARTHRITIS
     Dosage: 2.5 MG, QD
     Route: 048

REACTIONS (6)
  - ARTHRALGIA [None]
  - BLOOD URINE PRESENT [None]
  - DRUG INEFFECTIVE [None]
  - MALAISE [None]
  - NASAL CONGESTION [None]
  - UPPER-AIRWAY COUGH SYNDROME [None]
